FAERS Safety Report 22319214 (Version 2)
Quarter: 2024Q3

REPORT INFORMATION
  Report Type: Spontaneous
  Country: FR (occurrence: FR)
  Receive Date: 20230515
  Receipt Date: 20240812
  Transmission Date: 20241016
  Serious: Yes (Life-Threatening)
  Sender: TEVA
  Company Number: None

PATIENT
  Age: 10 Year
  Sex: Female
  Weight: 35 kg

DRUGS (3)
  1. NOREPINEPHRINE [Suspect]
     Active Substance: NOREPINEPHRINE\NOREPINEPHRINE BITARTRATE
     Indication: Product preparation error
     Route: 065
     Dates: start: 20230328, end: 20230328
  2. CEFAZOLIN SODIUM [Concomitant]
     Active Substance: CEFAZOLIN SODIUM
     Indication: Product used for unknown indication
     Route: 065
  3. SODIUM CHLORIDE [Suspect]
     Active Substance: SODIUM CHLORIDE
     Indication: Product preparation error
     Route: 065

REACTIONS (3)
  - Bradycardia [Recovered/Resolved]
  - Product preparation error [Recovered/Resolved]
  - Hypertensive crisis [Recovered/Resolved]

NARRATIVE: CASE EVENT DATE: 20230328
